FAERS Safety Report 18261550 (Version 1)
Quarter: 2020Q3

REPORT INFORMATION
  Report Type: Spontaneous
  Country: US (occurrence: US)
  Receive Date: 20200911
  Receipt Date: 20200911
  Transmission Date: 20201103
  Serious: No
  Sender: FDA-Public Use
  Company Number: None

PATIENT
  Age: 33 Year
  Sex: Female
  Weight: 80 kg

DRUGS (4)
  1. BUPIVACAINE SPINAL 0.75% IN DEXTROSE 8.25% [Suspect]
     Active Substance: BUPIVACAINE
     Indication: SPINAL ANAESTHESIA
     Dosage: ?          OTHER FREQUENCY:ONCE;?
     Route: 037
     Dates: start: 20200909, end: 20200911
  2. BUPIVACIANE SPINAL [Concomitant]
     Dates: start: 20200909, end: 20200909
  3. BUPIVACIANE SPINAL [Concomitant]
     Dates: start: 20200911, end: 20200911
  4. BUPIVACIANE SPINAL [Concomitant]
     Dates: start: 20200908, end: 20200908

REACTIONS (1)
  - Drug ineffective [None]

NARRATIVE: CASE EVENT DATE: 20200910
